FAERS Safety Report 7673273-X (Version None)
Quarter: 2011Q3

REPORT INFORMATION
  Report Type: 
  Country: None (occurrence: None)
  Receive Date: 20110810
  Receipt Date: 20110801
  Transmission Date: 20111222
  Serious: Yes (Other)
  Sender: FDA-Public Use
  Company Number: FR-CEPHALON-2011004057

PATIENT
  Sex: Male

DRUGS (5)
  1. LYRICA [Concomitant]
  2. TETRAZEPAM [Concomitant]
  3. PREDNISONE [Concomitant]
  4. ACTIQ [Suspect]
     Indication: PAIN
     Route: 002
     Dates: start: 20110501
  5. ACTIQ [Suspect]
     Indication: PROCEDURAL PAIN
     Route: 002
     Dates: start: 20110501, end: 20110501

REACTIONS (2)
  - INTERVERTEBRAL DISC OPERATION [None]
  - DRUG PRESCRIBING ERROR [None]
